FAERS Safety Report 7958143-1 (Version None)
Quarter: 2011Q4

REPORT INFORMATION
  Report Type: 
  Country: None (occurrence: None)
  Receive Date: 20111201
  Receipt Date: 20111122
  Transmission Date: 20120403
  Serious: Yes (Hospitalization)
  Sender: FDA-Public Use
  Company Number: 2011MA016889

PATIENT
  Age: 29 Year
  Sex: Female

DRUGS (6)
  1. GAVISCON [Concomitant]
  2. MIRTAZAPINE [Suspect]
     Indication: DEPRESSION
     Dosage: 15 MG; 1X; PO
     Route: 048
  3. LANSOPRAZOLE [Concomitant]
  4. ACETAMINOPHEN [Concomitant]
  5. MIRTAZAPINE [Suspect]
     Indication: DEPRESSION
     Dosage: 15 MG; 1X; PO
     Route: 048
  6. DICYCLOVERINE [Concomitant]

REACTIONS (6)
  - NAUSEA [None]
  - PAIN [None]
  - DISCOMFORT [None]
  - ABDOMINAL PAIN [None]
  - ALANINE AMINOTRANSFERASE INCREASED [None]
  - VOMITING [None]
